FAERS Safety Report 8472852-X (Version None)
Quarter: 2012Q2

REPORT INFORMATION
  Report Type: 
  Country: None (occurrence: None)
  Receive Date: 20120627
  Receipt Date: 20120625
  Transmission Date: 20120825
  Serious: Yes (Hospitalization, Other)
  Sender: FDA-Public Use
  Company Number: US-TEVA-345173USA

PATIENT
  Sex: Male

DRUGS (10)
  1. METHOTREXATE [Suspect]
     Indication: RHEUMATOID ARTHRITIS
     Dosage: 2.1429 MILLIGRAM;
     Route: 048
     Dates: start: 20110705
  2. ALPRAZOLAM [Concomitant]
     Dates: start: 20120417
  3. VICODIN [Concomitant]
     Dates: start: 20100101
  4. SUCRALFATE [Concomitant]
     Dates: start: 20120320
  5. FOLIC ACID [Concomitant]
     Dates: start: 20110705
  6. FISH OIL [Concomitant]
     Dates: start: 20100101
  7. IBUPROFEN [Concomitant]
     Dates: start: 20110101
  8. ABATACEPT [Suspect]
     Indication: RHEUMATOID ARTHRITIS
     Route: 058
     Dates: start: 20110907
  9. ADALIMUMAB [Suspect]
     Indication: RHEUMATOID ARTHRITIS
     Route: 058
     Dates: start: 20110907
  10. ASPIRIN [Concomitant]
     Dates: start: 20100101

REACTIONS (1)
  - APPENDICITIS [None]
